FAERS Safety Report 19064203 (Version 1)
Quarter: 2021Q1

REPORT INFORMATION
  Report Type: Spontaneous
  Country: US (occurrence: US)
  Receive Date: 20210326
  Receipt Date: 20210326
  Transmission Date: 20210420
  Serious: Yes (Hospitalization)
  Sender: FDA-Public Use
  Company Number: US-C B FLEET CO INC-202103-US-000998

PATIENT
  Sex: Male

DRUGS (1)
  1. COMPOUND W ONE STEP PLANTAR FOOT PADS [Suspect]
     Active Substance: SALICYLIC ACID
     Indication: PRODUCT USED FOR UNKNOWN INDICATION
     Dosage: DOSE UNKNOWN
     Route: 061

REACTIONS (3)
  - Product used for unknown indication [None]
  - Malaise [Recovered/Resolved]
  - Near death experience [Recovered/Resolved]
